FAERS Safety Report 4469127-2 (Version None)
Quarter: 2004Q4

REPORT INFORMATION
  Report Type: 
  Country: None (occurrence: None)
  Receive Date: 20041005
  Receipt Date: 20041005
  Transmission Date: 20050328
  Serious: No
  Sender: FDA-Public Use
  Company Number: None

PATIENT
  Age: 30 Year
  Sex: Male
  Weight: 61.6892 kg

DRUGS (8)
  1. VIREAD [Suspect]
     Indication: BLOOD CREATININE INCREASED
     Dosage: 300 MG PO QD
     Route: 048
     Dates: start: 20020801, end: 20040801
  2. VIREAD [Suspect]
     Indication: HAEMATURIA
     Dosage: 300 MG PO QD
     Route: 048
     Dates: start: 20020801, end: 20040801
  3. VIREAD [Suspect]
     Indication: HYPOPHOSPHATAEMIA
     Dosage: 300 MG PO QD
     Route: 048
     Dates: start: 20020801, end: 20040801
  4. 3TL [Concomitant]
  5. NVD [Concomitant]
  6. TDF [Concomitant]
  7. ZOLOFT [Concomitant]
  8. ZIAGEN [Concomitant]

REACTIONS (2)
  - FANCONI SYNDROME ACQUIRED [None]
  - FATIGUE [None]
